FAERS Safety Report 8816264 (Version 2)
Quarter: 2012Q4

REPORT INFORMATION
  Report Type: Report from Study
  Country: RU (occurrence: RU)
  Receive Date: 20120930
  Receipt Date: 20121018
  Transmission Date: 20130627
  Serious: Yes (Hospitalization, Other)
  Sender: FDA-Public Use
  Company Number: PHHY2012RU083419

PATIENT
  Age: 63 Year
  Sex: Male

DRUGS (2)
  1. IMATINIB [Suspect]
     Dosage: 800 mg,daily
     Route: 048
     Dates: start: 20110919, end: 20120902
  2. HYDREA [Concomitant]
     Dosage: 1500 g
     Dates: start: 20110919

REACTIONS (6)
  - Pleurisy [Recovering/Resolving]
  - Chronic myeloid leukaemia [Recovering/Resolving]
  - Oedema [Recovering/Resolving]
  - Ascites [Recovering/Resolving]
  - Pericarditis [Recovering/Resolving]
  - Splenomegaly [Unknown]
